FAERS Safety Report 5599327-X (Version None)
Quarter: 2008Q1

REPORT INFORMATION
  Report Type: 
  Country: None (occurrence: None)
  Receive Date: 20080117
  Receipt Date: 20080102
  Transmission Date: 20080703
  Serious: Yes (Hospitalization)
  Sender: FDA-Public Use
  Company Number: 2008US000166

PATIENT
  Sex: Female

DRUGS (5)
  1. AMBISOME [Suspect]
     Indication: ASPERGILLOSIS
     Dosage: 350 MG, UID/QD, IV NOS
     Route: 042
     Dates: start: 20071019, end: 20071201
  2. AMITRIPTYLINE HCL [Concomitant]
  3. CO-TENIDONE (CHLORTALIDONE, ATENOLOL) [Concomitant]
  4. NIFEDIPINE [Concomitant]
  5. VORICONAZOLE (VORICONAZOLE) [Concomitant]

REACTIONS (3)
  - BLOOD PRESSURE DECREASED [None]
  - HYPOVOLAEMIA [None]
  - RENAL FAILURE ACUTE [None]
